FAERS Safety Report 10929597 (Version 2)
Quarter: 2015Q1

REPORT INFORMATION
  Report Type: Report from Study
  Country: CA (occurrence: CA)
  Receive Date: 20150319
  Receipt Date: 20150331
  Transmission Date: 20150721
  Serious: Yes (Other)
  Sender: FDA-Public Use
  Company Number: CA-ABBVIE-15K-028-1356276-00

PATIENT
  Age: 77 Year
  Sex: Female

DRUGS (1)
  1. HUMIRA [Suspect]
     Active Substance: ADALIMUMAB
     Indication: PSORIASIS
     Route: 058
     Dates: start: 20120507

REACTIONS (4)
  - Skin lesion [Not Recovered/Not Resolved]
  - Actinic keratosis [Unknown]
  - Skin cancer [Recovered/Resolved]
  - Hypertrophy [Unknown]

NARRATIVE: CASE EVENT DATE: 20150212
